FAERS Safety Report 8447109-3 (Version None)
Quarter: 2012Q2

REPORT INFORMATION
  Report Type: 
  Country: None (occurrence: None)
  Receive Date: 20120619
  Receipt Date: 20120615
  Transmission Date: 20120825
  Serious: No
  Sender: FDA-Public Use
  Company Number: US-PFIZER INC-2012122171

PATIENT
  Sex: Female
  Weight: 77.098 kg

DRUGS (2)
  1. METFORMIN [Concomitant]
     Dosage: UNK
  2. LYRICA [Suspect]
     Indication: NEUROPATHY PERIPHERAL
     Dosage: 75 MG, UNK
     Route: 048
     Dates: start: 20080101, end: 20120501

REACTIONS (1)
  - PAIN [None]
